FAERS Safety Report 7576419-7 (Version None)
Quarter: 2011Q2

REPORT INFORMATION
  Report Type: 
  Country: None (occurrence: None)
  Receive Date: 20110628
  Receipt Date: 20110617
  Transmission Date: 20111010
  Serious: Yes (Death, Other)
  Sender: FDA-Public Use
  Company Number: US-ELI_LILLY_AND_COMPANY-US201010001488

PATIENT
  Age: 56 Year
  Sex: Female

DRUGS (3)
  1. FORTEO [Suspect]
     Dosage: 20 UG, DAILY (1/D)
     Route: 065
  2. FORTEO [Suspect]
     Indication: OSTEOPOROSIS
     Dosage: 20 UG, DAILY (1/D)
     Route: 065
     Dates: start: 20100914
  3. FORTEO [Suspect]
     Dosage: 20 UG, DAILY (1/D)
     Route: 065

REACTIONS (9)
  - PAIN IN EXTREMITY [None]
  - NAUSEA [None]
  - SLUGGISHNESS [None]
  - FATIGUE [None]
  - SKIN DISORDER [None]
  - DEATH [None]
  - CONSTIPATION [None]
  - LOSS OF CONSCIOUSNESS [None]
  - DECREASED ACTIVITY [None]
